FAERS Safety Report 23318305 (Version 2)
Quarter: 2023Q4

REPORT INFORMATION
  Report Type: Spontaneous
  Country: US (occurrence: None)
  Receive Date: 20231220
  Receipt Date: 20231221
  Transmission Date: 20240110
  Serious: Yes (Hospitalization)
  Sender: FDA-Public Use
  Company Number: US-ROCHE-3475895

PATIENT
  Sex: Female

DRUGS (7)
  1. XOLAIR [Suspect]
     Active Substance: OMALIZUMAB
     Indication: Asthma
     Dosage: STRENGTH:150MG/ML, INJECT 2 SYRINGES UNDER THE SKIN.
     Route: 058
     Dates: start: 20190129
  2. XOLAIR [Suspect]
     Active Substance: OMALIZUMAB
  3. XOLAIR [Suspect]
     Active Substance: OMALIZUMAB
  4. BEROCCA PLUS (UNITED STATES) [Concomitant]
  5. IRON [Concomitant]
     Active Substance: IRON
  6. POTASSIUM [Concomitant]
     Active Substance: POTASSIUM
  7. SEREVENT DISKUS [Concomitant]
     Active Substance: SALMETEROL XINAFOATE

REACTIONS (2)
  - Asthma [Unknown]
  - Disease progression [Unknown]
